FAERS Safety Report 19410293 (Version 1)
Quarter: 2021Q2

REPORT INFORMATION
  Report Type: Spontaneous
  Country: US (occurrence: US)
  Receive Date: 20210611
  Receipt Date: 20210611
  Transmission Date: 20210717
  Serious: Yes (Hospitalization)
  Sender: FDA-Public Use
  Company Number: None

PATIENT
  Age: 74 Year

DRUGS (16)
  1. INTEGRA PLUS [Concomitant]
     Active Substance: ASCORBIC ACID\BIOTIN\CALCIUM PANTOTHENATE\FERROUS ASPARTO GLYCINATE\FERROUS FUMARATE\FOLIC ACID\NIACIN\PYRIDOXINE HYDROCHLORIDE\RIBOFLAVIN\THIAMINE MONONITRATE
     Dates: start: 20210604
  2. MONTELUKAST [Concomitant]
     Active Substance: MONTELUKAST SODIUM
     Dates: start: 20190815
  3. FLUTICASONE. [Concomitant]
     Active Substance: FLUTICASONE
     Dates: start: 20210208
  4. EZETIMIBE. [Concomitant]
     Active Substance: EZETIMIBE
     Dates: start: 20200122
  5. PREDNISOLONE SUS [Concomitant]
     Dates: start: 20200909
  6. AMOXICILLIN CLAV [Concomitant]
     Dates: start: 20201216
  7. METOPROLOL TAR [Concomitant]
     Active Substance: METOPROLOL TARTRATE
     Dates: start: 20191231
  8. METRONIDAZOLE. [Concomitant]
     Active Substance: METRONIDAZOLE
     Dates: start: 20200330
  9. OFLOXACIN DROPS [Concomitant]
     Dates: start: 20200909
  10. SUTENT [Suspect]
     Active Substance: SUNITINIB MALATE
     Indication: RENAL CANCER
     Route: 048
     Dates: start: 20190114
  11. TAMSULOSIN [Concomitant]
     Active Substance: TAMSULOSIN
     Dates: start: 20191113
  12. OMPERAZOLE [Concomitant]
     Active Substance: OMEPRAZOLE
     Dates: start: 20191113
  13. CIPROFLOXACIN. [Concomitant]
     Active Substance: CIPROFLOXACIN
     Dates: start: 20200702
  14. LISINOPRIL. [Concomitant]
     Active Substance: LISINOPRIL
     Dates: start: 20200123
  15. METOPROLOL SUC [Concomitant]
     Dates: start: 20200302
  16. ROSUVASTATIN. [Concomitant]
     Active Substance: ROSUVASTATIN
     Dates: start: 20210123

REACTIONS (5)
  - Therapy interrupted [None]
  - Loss of consciousness [None]
  - Dehydration [None]
  - Head injury [None]
  - Diarrhoea [None]

NARRATIVE: CASE EVENT DATE: 20210610
